FAERS Safety Report 5050955-X (Version None)
Quarter: 2006Q3

REPORT INFORMATION
  Report Type: 
  Country: None (occurrence: None)
  Receive Date: 20060710
  Receipt Date: 20060626
  Transmission Date: 20061208
  Serious: Yes (Other)
  Sender: FDA-Public Use
  Company Number: 225783

PATIENT
  Sex: Female

DRUGS (6)
  1. HERCEPTIN [Suspect]
     Indication: BREAST CANCER
     Dates: start: 20051106, end: 20060524
  2. EFFEXOR XR [Concomitant]
  3. ADRIAMYCIN PFS [Concomitant]
  4. CYTOXAN [Concomitant]
  5. RADIATION (RADIATION THERAPY) [Concomitant]
  6. TAMOXIFEN CITRATE [Concomitant]

REACTIONS (9)
  - AGNOSIA [None]
  - DEMYELINATION [None]
  - MULTIPLE SCLEROSIS [None]
  - MUSCULOSKELETAL DISCOMFORT [None]
  - NUCLEAR MAGNETIC RESONANCE IMAGING BRAIN ABNORMAL [None]
  - OEDEMA PERIPHERAL [None]
  - PALPITATIONS [None]
  - REFUSAL OF TREATMENT BY PATIENT [None]
  - SPEECH DISORDER [None]
